FAERS Safety Report 8289237-1 (Version None)
Quarter: 2012Q2

REPORT INFORMATION
  Report Type: 
  Country: None (occurrence: None)
  Receive Date: 20120417
  Receipt Date: 20120410
  Transmission Date: 20120825
  Serious: Yes (Hospitalization)
  Sender: FDA-Public Use
  Company Number: PHHY2012DE030880

PATIENT
  Sex: Male

DRUGS (2)
  1. RITALIN LA [Suspect]
     Dosage: 10 MG, DAILY
     Route: 048
     Dates: start: 20120328, end: 20120407
  2. METHYLPHENIDATE HCL [Suspect]
     Dosage: 5 MG DAILY
     Route: 048
     Dates: start: 20120328, end: 20120407

REACTIONS (11)
  - BLOOD CREATINE PHOSPHOKINASE INCREASED [None]
  - ALANINE AMINOTRANSFERASE INCREASED [None]
  - ASPARTATE AMINOTRANSFERASE INCREASED [None]
  - INFECTION [None]
  - GAIT DISTURBANCE [None]
  - ARTHRALGIA [None]
  - HEADACHE [None]
  - MYOGLOBIN BLOOD INCREASED [None]
  - DIZZINESS [None]
  - LIVEDO RETICULARIS [None]
  - PERIPHERAL COLDNESS [None]
